FAERS Safety Report 4611668-9 (Version None)
Quarter: 2005Q1

REPORT INFORMATION
  Report Type: 
  Country: None (occurrence: None)
  Receive Date: 20050317
  Receipt Date: 20050228
  Transmission Date: 20050727
  Serious: Yes (Other)
  Sender: FDA-Public Use
  Company Number: JP-ROCHE-398361

PATIENT
  Age: 83 Year
  Sex: Female

DRUGS (1)
  1. TAMIFLU [Suspect]
     Indication: INFLUENZA
     Route: 048
     Dates: start: 20050220, end: 20050221

REACTIONS (3)
  - HAEMATEMESIS [None]
  - MELAENA [None]
  - MUCOSAL HAEMORRHAGE [None]
